FAERS Safety Report 5145097-9 (Version None)
Quarter: 2006Q4

REPORT INFORMATION
  Report Type: 
  Country: None (occurrence: None)
  Receive Date: 20061107
  Receipt Date: 20061026
  Transmission Date: 20070319
  Serious: Yes (Hospitalization)
  Sender: FDA-Public Use
  Company Number: US-JNJFOC-20061006585

PATIENT
  Sex: Female
  Weight: 92.08 kg

DRUGS (5)
  1. DURAGESIC-100 [Suspect]
     Indication: PAIN
     Route: 062
  2. QUINAPRIL [Concomitant]
     Indication: CARDIAC DISORDER
     Route: 048
  3. TOPROL-XL [Concomitant]
     Indication: BLOOD PRESSURE
     Route: 048
  4. XANAX [Concomitant]
     Indication: NERVOUSNESS
     Dosage: MAY TAKE UP TO 3
     Route: 048
  5. VICODIN [Concomitant]
     Indication: PAIN
     Route: 048

REACTIONS (4)
  - CARDIAC PACEMAKER MALFUNCTION [None]
  - FATIGUE [None]
  - HEART RATE DECREASED [None]
  - WEIGHT DECREASED [None]
